FAERS Safety Report 18730510 (Version 1)
Quarter: 2021Q1

REPORT INFORMATION
  Report Type: Spontaneous
  Country: GB (occurrence: GB)
  Receive Date: 20210112
  Receipt Date: 20210112
  Transmission Date: 20210419
  Serious: Yes (Hospitalization)
  Sender: FDA-Public Use
  Company Number: GB-SYNTHON BV-IN51PV21_56924

PATIENT
  Sex: Male

DRUGS (1)
  1. LOSINATE MR [Suspect]
     Active Substance: TAMSULOSIN
     Indication: NEPHROLITHIASIS
     Dosage: ONCE DAILY
     Route: 048
     Dates: start: 20201230

REACTIONS (6)
  - Nausea [Unknown]
  - Headache [Unknown]
  - Headache [Unknown]
  - Subarachnoid haemorrhage [Unknown]
  - Syncope [Unknown]
  - Headache [Recovered/Resolved]

NARRATIVE: CASE EVENT DATE: 20201230
